FAERS Safety Report 5625800-1 (Version None)
Quarter: 2008Q1

REPORT INFORMATION
  Report Type: 
  Country: None (occurrence: None)
  Receive Date: 20080214
  Receipt Date: 20080206
  Transmission Date: 20080703
  Serious: Yes (Other)
  Sender: FDA-Public Use
  Company Number: US-ASTRAZENECA-2008UW02531

PATIENT
  Age: 64 Year
  Sex: Female

DRUGS (1)
  1. ARIMIDEX [Suspect]
     Indication: BREAST CANCER
     Route: 048
     Dates: start: 20060101

REACTIONS (7)
  - ENDODONTIC PROCEDURE [None]
  - FALL [None]
  - FRACTURE [None]
  - PARAESTHESIA [None]
  - RASH ERYTHEMATOUS [None]
  - TOOTH EXTRACTION [None]
  - VERTIGO [None]
